FAERS Safety Report 16640138 (Version 1)
Quarter: 2019Q3

REPORT INFORMATION
  Report Type: Spontaneous
  Country: DE (occurrence: DE)
  Receive Date: 20190727
  Receipt Date: 20190727
  Transmission Date: 20191004
  Serious: Yes (Other)
  Sender: FDA-Public Use
  Company Number: PHHY2019DE170251

PATIENT
  Sex: Male

DRUGS (1)
  1. VALSARTAN. [Suspect]
     Active Substance: VALSARTAN
     Indication: PRODUCT USED FOR UNKNOWN INDICATION
     Dosage: 160 MG, QD
     Route: 065
     Dates: start: 2016, end: 2018

REACTIONS (4)
  - Product impurity [Recovered/Resolved]
  - Hypoaesthesia oral [Not Recovered/Not Resolved]
  - Tongue neoplasm malignant stage unspecified [Recovered/Resolved with Sequelae]
  - Hypoaesthesia [Not Recovered/Not Resolved]

NARRATIVE: CASE EVENT DATE: 2016
